FAERS Safety Report 23838316 (Version 1)
Quarter: 2024Q2

REPORT INFORMATION
  Report Type: Spontaneous
  Country: US (occurrence: US)
  Receive Date: 20240509
  Receipt Date: 20240509
  Transmission Date: 20240715
  Serious: No
  Sender: FDA-Public Use
  Company Number: US-INTRA-CELLULAR THERAPIES, INC.-2024ICT00096

PATIENT
  Age: 58 Year
  Sex: Female

DRUGS (9)
  1. CAPLYTA [Suspect]
     Active Substance: LUMATEPERONE
     Indication: Bipolar disorder
     Dosage: 42 MG, 1X/DAY
     Dates: start: 20231031
  2. VIIBRYD [Concomitant]
     Active Substance: VILAZODONE HYDROCHLORIDE
  3. COGENTIN [Concomitant]
     Active Substance: BENZTROPINE MESYLATE
  4. CELEXA [Concomitant]
     Active Substance: CITALOPRAM HYDROBROMIDE
  5. DOXEPIN [Concomitant]
     Active Substance: DOXEPIN
  6. GUANFACINE [Concomitant]
     Active Substance: GUANFACINE
  7. INVEGA [Concomitant]
     Active Substance: PALIPERIDONE
  8. MELATONIN [Concomitant]
     Active Substance: MELATONIN
  9. VISTARIL (HYDROXYZINE HYDROCHLORIDE) [Concomitant]
     Active Substance: HYDROXYZINE HYDROCHLORIDE

REACTIONS (1)
  - Chest pain [Unknown]
